FAERS Safety Report 7512658-9 (Version None)
Quarter: 2011Q2

REPORT INFORMATION
  Report Type: 
  Country: None (occurrence: None)
  Receive Date: 20110531
  Receipt Date: 20110519
  Transmission Date: 20111010
  Serious: Yes (Other)
  Sender: FDA-Public Use
  Company Number: US-JNJFOC-20110509989

PATIENT
  Sex: Female

DRUGS (9)
  1. FENTANYL CITRATE [Suspect]
     Route: 062
     Dates: start: 20110201, end: 20110516
  2. PROZAC [Concomitant]
     Indication: DEPRESSION
     Dosage: ONE IN THE MORNING AND ONE IN THE EVENING
     Route: 048
  3. VALIUM [Concomitant]
     Indication: MUSCLE SPASMS
     Route: 048
  4. FENTANYL CITRATE [Suspect]
     Indication: PAIN
     Route: 062
     Dates: start: 20110516
  5. RESTORIL [Concomitant]
     Indication: SLEEP DISORDER
     Route: 048
  6. FENTANYL-100 [Suspect]
     Indication: PAIN
     Dosage: 100 AND 50UG/HR PATCH
     Route: 062
     Dates: start: 19980101, end: 20050101
  7. FENTANYL-100 [Suspect]
     Indication: PAIN
     Dosage: 100 AND 50 UH/HR PATCH
     Route: 062
     Dates: start: 20050101, end: 20090101
  8. FENTANYL-100 [Suspect]
     Route: 062
     Dates: start: 20110516
  9. FENTANYL CITRATE [Suspect]
     Dosage: 100+50
     Route: 062
     Dates: start: 20090101, end: 20100101

REACTIONS (11)
  - DRUG EFFECT INCREASED [None]
  - FALL [None]
  - MULTIPLE SCLEROSIS [None]
  - INADEQUATE ANALGESIA [None]
  - MALAISE [None]
  - INAPPROPRIATE SCHEDULE OF DRUG ADMINISTRATION [None]
  - DIZZINESS [None]
  - HYPERTENSION [None]
  - OSTEOARTHRITIS [None]
  - OVERDOSE [None]
  - VOMITING [None]
